FAERS Safety Report 5544689-2 (Version None)
Quarter: 2007Q4

REPORT INFORMATION
  Report Type: 
  Country: None (occurrence: None)
  Receive Date: 20071210
  Receipt Date: 20070104
  Transmission Date: 20080405
  Serious: No
  Sender: FDA-Public Use
  Company Number: US-AMGEN-KDL205595

PATIENT
  Sex: Male

DRUGS (1)
  1. ENBREL [Suspect]
     Indication: PSORIATIC ARTHROPATHY
     Dates: start: 20041001, end: 20061201

REACTIONS (4)
  - ERYTHEMA [None]
  - LOCALISED OEDEMA [None]
  - PRURITUS [None]
  - SWOLLEN TONGUE [None]
